FAERS Safety Report 6841819-7 (Version None)
Quarter: 2010Q3

REPORT INFORMATION
  Report Type: 
  Country: None (occurrence: None)
  Receive Date: 20100714
  Receipt Date: 20070718
  Transmission Date: 20110219
  Serious: No
  Sender: FDA-Public Use
  Company Number: US-PFIZER INC-2007059960

PATIENT
  Sex: Female
  Weight: 66.7 kg

DRUGS (3)
  1. CHANTIX [Suspect]
     Indication: SMOKING CESSATION THERAPY
     Route: 048
     Dates: start: 20070701, end: 20070718
  2. VICODIN [Concomitant]
  3. MUSCLE RELAXANTS [Concomitant]

REACTIONS (6)
  - ANGER [None]
  - APATHY [None]
  - DEPRESSION [None]
  - HOSTILITY [None]
  - NAUSEA [None]
  - PAIN IN EXTREMITY [None]
